FAERS Safety Report 10555329 (Version 1)
Quarter: 2014Q4

REPORT INFORMATION
  Report Type: Spontaneous
  Country: US (occurrence: US)
  Receive Date: 20141030
  Receipt Date: 20141030
  Transmission Date: 20150529
  Serious: Yes (Other)
  Sender: FDA-Public Use
  Company Number: US-WATSON-2014-23166

PATIENT
  Age: 53 Year
  Sex: Female
  Weight: 70 kg

DRUGS (8)
  1. CYMBALTA [Suspect]
     Active Substance: DULOXETINE HYDROCHLORIDE
     Indication: FIBROMYALGIA
     Dosage: 100 MG, DAILY
     Route: 048
     Dates: end: 201305
  2. VASOTEC [Concomitant]
     Active Substance: ENALAPRIL MALEATE
     Indication: HYPERTENSION
     Dosage: UNK, UNKNOWN
     Route: 065
  3. HYDROCODONE [Concomitant]
     Active Substance: HYDROCODONE
     Indication: PAIN
     Dosage: UNK, UNKNOWN
     Route: 065
  4. CYCLOBENZAPRINE HYDROCHLORIDE (WATSON LABORATORIES) [Suspect]
     Active Substance: CYCLOBENZAPRINE HYDROCHLORIDE
     Indication: PRODUCT USED FOR UNKNOWN INDICATION
     Dosage: UNK, PRN
     Route: 065
  5. LIPITOR [Concomitant]
     Active Substance: ATORVASTATIN CALCIUM
     Indication: PRODUCT USED FOR UNKNOWN INDICATION
     Dosage: UNK, UNKNOWN
     Route: 065
  6. LEVOXYL [Concomitant]
     Active Substance: LEVOTHYROXINE SODIUM
     Indication: THYROID DISORDER
     Dosage: UNK, UNKNOWN
     Route: 065
  7. PLAVIX [Concomitant]
     Active Substance: CLOPIDOGREL BISULFATE
     Indication: PRODUCT USED FOR UNKNOWN INDICATION
     Dosage: UNK, UNKNOWN
     Route: 065
  8. TOPROL XL [Concomitant]
     Active Substance: METOPROLOL SUCCINATE
     Indication: HYPERTENSION
     Dosage: UNK, UNKNOWN
     Route: 065

REACTIONS (10)
  - Thinking abnormal [Unknown]
  - Joint swelling [Unknown]
  - Hypersensitivity [Unknown]
  - Unevaluable event [Unknown]
  - Serotonin syndrome [Unknown]
  - Myocardial infarction [Unknown]
  - Immobile [Unknown]
  - Apparent death [Unknown]
  - Rash [Unknown]
  - Somnolence [Unknown]

NARRATIVE: CASE EVENT DATE: 201305
